FAERS Safety Report 11368228 (Version 1)
Quarter: 2015Q3

REPORT INFORMATION
  Report Type: Spontaneous
  Country: US (occurrence: None)
  Receive Date: 20150811
  Receipt Date: 20150811
  Transmission Date: 20151125
  Serious: Yes (Other)
  Sender: FDA-Public Use
  Company Number: None

PATIENT
  Age: 80 Year
  Sex: Female
  Weight: 72.5 kg

DRUGS (7)
  1. ASPIRIN. [Concomitant]
     Active Substance: ASPIRIN
  2. ATORVASTATIN [Concomitant]
     Active Substance: ATORVASTATIN
  3. FERROUS GLUCONATE [Concomitant]
     Active Substance: FERROUS GLUCONATE
  4. HURRICANE SPRAY [Suspect]
     Active Substance: BENZOCAINE
     Indication: ENDOSCOPY
     Dates: start: 20150702, end: 20150702
  5. AMLODIPINE [Concomitant]
     Active Substance: AMLODIPINE BESYLATE
  6. COENZYME [Concomitant]
     Active Substance: UBIDECARENONE
  7. FAMOTIDINE. [Concomitant]
     Active Substance: FAMOTIDINE

REACTIONS (3)
  - Oxygen saturation decreased [None]
  - Haemoglobinaemia [None]
  - Pallor [None]

NARRATIVE: CASE EVENT DATE: 20150702
